FAERS Safety Report 10180591 (Version 2)
Quarter: 2014Q2

REPORT INFORMATION
  Report Type: Spontaneous
  Country: US (occurrence: US)
  Receive Date: 20140519
  Receipt Date: 20140519
  Transmission Date: 20141212
  Serious: No
  Sender: FDA-Public Use
  Company Number: US-AMGEN INC.-USASP2014015499

PATIENT
  Age: 74 Year
  Sex: Female
  Weight: 67.57 kg

DRUGS (4)
  1. PROLIA [Suspect]
     Indication: OSTEOPOROSIS POSTMENOPAUSAL
     Dosage: 60 MG, Q6MO
     Route: 058
     Dates: start: 20130708
  2. VITAMINS                           /00067501/ [Concomitant]
  3. FLONASE                            /00908302/ [Concomitant]
     Indication: CHRONIC SINUSITIS
     Dosage: 50 MUG, BID (TWO SPAY EACH NOSTRIL)
     Dates: start: 20120306
  4. CLARITIN                           /00413701/ [Concomitant]
     Indication: HYPERSENSITIVITY
     Dosage: 10 MG, UNK
     Route: 048

REACTIONS (2)
  - Dizziness [Recovered/Resolved]
  - Bronchitis [Recovered/Resolved]
